FAERS Safety Report 25492113 (Version 2)
Quarter: 2025Q3

REPORT INFORMATION
  Report Type: Spontaneous
  Country: JP (occurrence: JP)
  Receive Date: 20250630
  Receipt Date: 20250803
  Transmission Date: 20251020
  Serious: Yes (Death, Other)
  Sender: TAKEDA
  Company Number: JP-TAKEDA-2025TJP005604

PATIENT
  Age: 74 Year
  Sex: Male

DRUGS (2)
  1. FRUZAQLA [Suspect]
     Active Substance: FRUQUINTINIB
     Indication: Colon cancer
     Dosage: 5 MILLIGRAM, QD
     Dates: start: 20250515
  2. FRUZAQLA [Suspect]
     Active Substance: FRUQUINTINIB

REACTIONS (3)
  - Nausea [Fatal]
  - Colon cancer [Fatal]
  - Decreased appetite [Not Recovered/Not Resolved]
